FAERS Safety Report 7130356-0 (Version None)
Quarter: 2010Q4

REPORT INFORMATION
  Report Type: 
  Country: None (occurrence: None)
  Receive Date: 20101201
  Receipt Date: 20101127
  Transmission Date: 20110411
  Serious: Yes (Death)
  Sender: FDA-Public Use
  Company Number: PHHY2010CO80733

PATIENT
  Sex: Male

DRUGS (4)
  1. RASILEZ [Suspect]
     Indication: HYPERTENSION
     Dosage: 300 MG PER DAY
     Route: 048
     Dates: start: 20060101
  2. NEBIVOLOL [Concomitant]
  3. ZINTREPID [Concomitant]
  4. NORVAS [Concomitant]

REACTIONS (1)
  - DEATH [None]
